FAERS Safety Report 6648753-6 (Version None)
Quarter: 2010Q1

REPORT INFORMATION
  Report Type: 
  Country: None (occurrence: None)
  Receive Date: 20100324
  Receipt Date: 20100312
  Transmission Date: 20100710
  Serious: Yes (Other)
  Sender: FDA-Public Use
  Company Number: JP-PFIZER INC-2010035680

PATIENT
  Age: 40 Year
  Sex: Male

DRUGS (3)
  1. ZOLOFT [Suspect]
     Dosage: 50 MG/DAY
     Route: 048
  2. GABAPENTIN [Concomitant]
     Route: 048
  3. SOLANAX [Concomitant]
     Route: 048

REACTIONS (2)
  - ACTIVATION SYNDROME [None]
  - BIPOLAR DISORDER [None]
